FAERS Safety Report 19643986 (Version 3)
Quarter: 2021Q3

REPORT INFORMATION
  Report Type: Report from Study
  Country: US (occurrence: US)
  Receive Date: 20210731
  Receipt Date: 20210819
  Transmission Date: 20211014
  Serious: Yes (Hospitalization, Other)
  Sender: FDA-Public Use
  Company Number: NVSC2021US173348

PATIENT
  Sex: Male

DRUGS (1)
  1. ENTRESTO [Suspect]
     Active Substance: SACUBITRIL\VALSARTAN
     Indication: PRODUCT USED FOR UNKNOWN INDICATION
     Dosage: 50 MG, BID (24/26 MG)
     Route: 048
     Dates: start: 2020

REACTIONS (8)
  - Cardiac failure congestive [Unknown]
  - Fluid retention [Unknown]
  - Asthenia [Unknown]
  - Hyperlipidaemia [Unknown]
  - Sleep disorder [Unknown]
  - Cough [Unknown]
  - Condition aggravated [Unknown]
  - Peripheral swelling [Unknown]
